FAERS Safety Report 4278278-7 (Version None)
Quarter: 2004Q1

REPORT INFORMATION
  Report Type: 
  Country: None (occurrence: None)
  Receive Date: 20040121
  Receipt Date: 20040104
  Transmission Date: 20041129
  Serious: Yes (Other)
  Sender: FDA-Public Use
  Company Number: US_040199762

PATIENT
  Age: 50 Year
  Sex: Male

DRUGS (2)
  1. FORTEO [Suspect]
     Indication: OSTEOPOROSIS
     Dates: start: 20030101
  2. TESTOSTERONE [Concomitant]

REACTIONS (7)
  - CHEST PAIN [None]
  - ERYTHEMA [None]
  - FEELING HOT [None]
  - LYMPHADENOPATHY [None]
  - METASTASIS [None]
  - METASTATIC MALIGNANT MELANOMA [None]
  - RECURRENT CANCER [None]
